FAERS Safety Report 8521186-3 (Version None)
Quarter: 2012Q3

REPORT INFORMATION
  Report Type: 
  Country: None (occurrence: None)
  Receive Date: 20120719
  Receipt Date: 20120710
  Transmission Date: 20120928
  Serious: Yes (Hospitalization, Other)
  Sender: FDA-Public Use
  Company Number: US-ELI_LILLY_AND_COMPANY-US201105003887

PATIENT
  Sex: Female

DRUGS (24)
  1. FORTEO [Suspect]
     Dosage: 20 UG, QD
  2. DEMECLOCYCLINE HCL [Concomitant]
     Dosage: 300 MG, BID
  3. IRON [Concomitant]
     Dosage: 90 MG, QD
  4. ASPIRIN [Concomitant]
     Dosage: 81 MG, QD
  5. ATENOLOL [Concomitant]
     Dosage: 25 MG, QD
  6. CALCIUM [Concomitant]
     Dosage: 500 MG, QD
  7. CLOZAPINE [Concomitant]
     Dosage: 3 ML, TID
  8. NYSTATIN [Concomitant]
     Dosage: 50000 U, TID
  9. ALDACTONE [Concomitant]
     Dosage: 25 MG, QD
  10. MYLANTA [Concomitant]
     Dosage: 30 ML, EVERY 4 HRS
  11. LISINOPRIL [Concomitant]
     Dosage: 10 MG, BID
  12. POTASSIUM CHLORIDE [Concomitant]
     Dosage: 10 MEQ, QD
  13. METAMUCIL-2 [Concomitant]
     Dosage: UNK, QD
  14. SPIRIVA [Concomitant]
     Dosage: UNK, QD
  15. FORTEO [Suspect]
     Indication: OSTEOPOROSIS
     Dosage: 20 UG, QD
     Dates: start: 20110401
  16. FORTEO [Suspect]
     Dosage: 20 UG, QD
  17. VITAMIN D [Concomitant]
     Dosage: UNK, QD
  18. ADVAIR DISKUS 100/50 [Concomitant]
     Dosage: UNK, BID
  19. SINGULAIR [Concomitant]
     Dosage: 10 MG, QD
  20. PROTONIX [Concomitant]
     Dosage: 40 MG, QD
  21. FORTEO [Suspect]
     Dosage: 20 UG, QD
     Dates: end: 20120626
  22. NORVASC [Concomitant]
     Dosage: 5 MG, QD
  23. LIPITOR [Concomitant]
     Dosage: 10 MG, QD
  24. FLONASE [Concomitant]
     Dosage: 1 DF, QD

REACTIONS (16)
  - DYSPNOEA [None]
  - VISUAL IMPAIRMENT [None]
  - PRURITUS [None]
  - CATARACT [None]
  - DYSPHONIA [None]
  - HYPERSENSITIVITY [None]
  - BRONCHITIS [None]
  - SINUS DISORDER [None]
  - OROPHARYNGEAL DISCOMFORT [None]
  - MUSCLE TWITCHING [None]
  - ULCER HAEMORRHAGE [None]
  - CARDIAC FAILURE CONGESTIVE [None]
  - UNEVALUABLE EVENT [None]
  - FATIGUE [None]
  - BLOOD PRESSURE INCREASED [None]
  - ANAEMIA [None]
